FAERS Safety Report 16712294 (Version 10)
Quarter: 2020Q1

REPORT INFORMATION
  Report Type: Report from Study
  Country: AR (occurrence: AR)
  Receive Date: 20190816
  Receipt Date: 20200127
  Transmission Date: 20200409
  Serious: Yes (Hospitalization)
  Sender: FDA-Public Use
  Company Number: AR-EISAI MEDICAL RESEARCH-EC-2019-060804

PATIENT
  Age: 76 Year
  Sex: Female
  Weight: 120 kg

DRUGS (11)
  1. LEVOTHYROXINE SODIUM. [Concomitant]
     Active Substance: LEVOTHYROXINE SODIUM
     Dates: start: 20190425
  2. LENVATINIB [Suspect]
     Active Substance: LENVATINIB
     Indication: ENDOMETRIAL CANCER
     Dosage: STARTING DOSE AT 20 MILLIGRAM ONCE DAILY (QD); (FLUCTUATED DOSE)
     Route: 048
     Dates: start: 20190108, end: 20190729
  3. PANTOPRAZOLE [Concomitant]
     Active Substance: PANTOPRAZOLE
     Dates: start: 201008
  4. PEMBROLIZUMAB. [Suspect]
     Active Substance: PEMBROLIZUMAB
     Route: 041
     Dates: start: 20190925
  5. PRIDINOL [Concomitant]
     Active Substance: PRIDINOL
     Dates: start: 201307
  6. BETAHISTINE [Concomitant]
     Active Substance: BETAHISTINE
     Dates: start: 201307
  7. PEMBROLIZUMAB. [Suspect]
     Active Substance: PEMBROLIZUMAB
     Route: 041
     Dates: start: 20190730, end: 20190730
  8. LENVATINIB [Suspect]
     Active Substance: LENVATINIB
     Route: 048
     Dates: start: 20190730, end: 20190811
  9. LENVATINIB [Suspect]
     Active Substance: LENVATINIB
     Dosage: STARTING DOSE AT 10 MILLIGRAM, ONCE DAILY (QD); (FLUCTUATED DOSE)
     Route: 048
     Dates: start: 20190821
  10. PEMBROLIZUMAB. [Suspect]
     Active Substance: PEMBROLIZUMAB
     Indication: ENDOMETRIAL CANCER
     Route: 041
     Dates: start: 20190108, end: 20190710
  11. VALSARTAN. [Concomitant]
     Active Substance: VALSARTAN
     Dates: start: 201007

REACTIONS (2)
  - Hyperglycaemia [Recovered/Resolved]
  - Renal injury [Recovered/Resolved]

NARRATIVE: CASE EVENT DATE: 20190812
